FAERS Safety Report 7719734-6 (Version None)
Quarter: 2011Q3

REPORT INFORMATION
  Report Type: 
  Country: None (occurrence: None)
  Receive Date: 20110831
  Receipt Date: 20110822
  Transmission Date: 20111222
  Serious: Yes (Other)
  Sender: FDA-Public Use
  Company Number: DE-BRISTOL-MYERS SQUIBB COMPANY-15989650

PATIENT
  Age: 72 Year
  Sex: Female

DRUGS (2)
  1. CARBOPLATIN [Suspect]
     Indication: OVARIAN CANCER
     Dosage: 1DF = AUC 6
  2. PACLITAXEL [Suspect]
     Indication: OVARIAN CANCER

REACTIONS (2)
  - POLYNEUROPATHY [None]
  - PROGRESSIVE CEREBELLAR DEGENERATION [None]
